FAERS Safety Report 14167576 (Version 2)
Quarter: 2018Q1

REPORT INFORMATION
  Report Type: Spontaneous
  Country: DE (occurrence: DE)
  Receive Date: 20171107
  Receipt Date: 20180323
  Transmission Date: 20180508
  Serious: Yes (Life-Threatening, Hospitalization, Other)
  Sender: FDA-Public Use
  Company Number: DE-DRREDDYS-GER/GER/17/0094346

PATIENT
  Age: 66 Year
  Sex: Male
  Weight: 70 kg

DRUGS (15)
  1. LEVETIRACETAM. [Concomitant]
     Active Substance: LEVETIRACETAM
     Route: 042
  2. L-THYROXIN [Concomitant]
     Active Substance: LEVOTHYROXINE SODIUM
     Indication: PRODUCT USED FOR UNKNOWN INDICATION
     Route: 048
  3. RISPERIDON [Suspect]
     Active Substance: RISPERIDONE
     Indication: PERSONALITY CHANGE
  4. LAMOTRIGINE. [Suspect]
     Active Substance: LAMOTRIGINE
     Indication: EPILEPSY
     Route: 048
  5. AZACITIDIN [Concomitant]
     Indication: MYELODYSPLASTIC SYNDROME
     Route: 042
     Dates: end: 20170829
  6. PANTOPRAZOLE [Concomitant]
     Active Substance: PANTOPRAZOLE
     Indication: PRODUCT USED FOR UNKNOWN INDICATION
     Route: 048
  7. MELPERON [Interacting]
     Active Substance: MELPERONE
     Indication: PRODUCT USED FOR UNKNOWN INDICATION
  8. VALPROAT [Interacting]
     Active Substance: VALPROATE SODIUM
     Indication: EPILEPSY
     Route: 048
     Dates: end: 20170101
  9. TORASEMID [Concomitant]
     Active Substance: TORSEMIDE
     Indication: PRODUCT USED FOR UNKNOWN INDICATION
     Route: 048
  10. TAMSULOSIN [Concomitant]
     Active Substance: TAMSULOSIN
     Indication: PRODUCT USED FOR UNKNOWN INDICATION
     Route: 048
  11. LAMOTRIGINE. [Interacting]
     Active Substance: LAMOTRIGINE
     Route: 048
     Dates: start: 20170101
  12. RISPERIDON [Suspect]
     Active Substance: RISPERIDONE
     Indication: ABNORMAL BEHAVIOUR
     Route: 048
     Dates: start: 20170801, end: 2017
  13. RISPERIDON [Suspect]
     Active Substance: RISPERIDONE
     Indication: AGGRESSION
  14. VALPROAT [Interacting]
     Active Substance: VALPROATE SODIUM
     Route: 042
  15. LEVETIRACETAM. [Concomitant]
     Active Substance: LEVETIRACETAM
     Indication: EPILEPSY
     Route: 048
     Dates: end: 20170101

REACTIONS (5)
  - Coma [Recovered/Resolved]
  - Drug interaction [Unknown]
  - Blood glucose increased [Unknown]
  - Epilepsy [Recovering/Resolving]
  - Endotracheal intubation [Recovering/Resolving]

NARRATIVE: CASE EVENT DATE: 20170913
